FAERS Safety Report 6209660-6 (Version None)
Quarter: 2009Q2

REPORT INFORMATION
  Report Type: 
  Country: None (occurrence: None)
  Receive Date: 20090601
  Receipt Date: 20090521
  Transmission Date: 20091009
  Serious: Yes (Hospitalization, Other)
  Sender: FDA-Public Use
  Company Number: US-BAYER-200917536NA

PATIENT
  Age: 27 Year
  Sex: Female

DRUGS (2)
  1. MIRENA [Suspect]
     Indication: DRUG USE FOR UNKNOWN INDICATION
     Dosage: CONTINUOUS
     Route: 015
     Dates: start: 20080422, end: 20090303
  2. SYNTHROID [Concomitant]

REACTIONS (16)
  - ABDOMINAL PAIN LOWER [None]
  - ALANINE AMINOTRANSFERASE INCREASED [None]
  - AMENORRHOEA [None]
  - ASPARTATE AMINOTRANSFERASE INCREASED [None]
  - BLOOD ALKALINE PHOSPHATASE INCREASED [None]
  - COMPLICATION OF DEVICE REMOVAL [None]
  - DEVICE BREAKAGE [None]
  - ENDOMETRITIS [None]
  - HEPATITIS C [None]
  - LIMB DISCOMFORT [None]
  - MALAISE [None]
  - NAUSEA [None]
  - PELVIC INFLAMMATORY DISEASE [None]
  - PYREXIA [None]
  - URINARY TRACT INFECTION [None]
  - VAGINAL DISCHARGE [None]
